FAERS Safety Report 11947987 (Version 1)
Quarter: 2016Q1

REPORT INFORMATION
  Report Type: Spontaneous
  Country: US (occurrence: US)
  Receive Date: 20160125
  Receipt Date: 20160125
  Transmission Date: 20160526
  Serious: Yes (Other)
  Sender: FDA-Public Use
  Company Number: US-PURDUE-USA-2016-0128503

PATIENT
  Sex: Female

DRUGS (1)
  1. OXYCONTIN [Suspect]
     Active Substance: OXYCODONE HYDROCHLORIDE
     Indication: INJURY
     Dosage: 40 MG, UNK
     Route: 048
     Dates: start: 2004

REACTIONS (7)
  - Tooth disorder [Unknown]
  - Pain [Unknown]
  - Drug withdrawal syndrome [Unknown]
  - Activities of daily living impaired [Unknown]
  - Hypertension [Unknown]
  - Malaise [Unknown]
  - Chest injury [Unknown]
